FAERS Safety Report 25107566 (Version 1)
Quarter: 2025Q1

REPORT INFORMATION
  Report Type: Report from Study
  Country: US (occurrence: US)
  Receive Date: 20250321
  Receipt Date: 20250321
  Transmission Date: 20250409
  Serious: Yes (Other)
  Sender: ABBVIE
  Company Number: US-ABBVIE-6190333

PATIENT
  Age: 55 Year
  Sex: Female

DRUGS (1)
  1. QULIPTA [Suspect]
     Active Substance: ATOGEPANT
     Indication: Rheumatoid arthritis
     Route: 048
     Dates: start: 2023

REACTIONS (1)
  - Foot operation [Not Recovered/Not Resolved]

NARRATIVE: CASE EVENT DATE: 20241001
